FAERS Safety Report 19799032 (Version 1)
Quarter: 2021Q3

REPORT INFORMATION
  Report Type: Spontaneous
  Country: US (occurrence: US)
  Receive Date: 20210907
  Receipt Date: 20210907
  Transmission Date: 20211014
  Serious: No
  Sender: FDA-Public Use
  Company Number: US-PFIZER INC-2021828969

PATIENT
  Age: 65 Year
  Sex: Female

DRUGS (1)
  1. IBRANCE [Suspect]
     Active Substance: PALBOCICLIB
     Indication: ILLNESS
     Dosage: 100 MG, CYCLIC, (21 DAYS ON, 7 DAYS OFF)
     Route: 048

REACTIONS (1)
  - White blood cell count decreased [Unknown]
